FAERS Safety Report 5156376-3 (Version None)
Quarter: 2006Q4

REPORT INFORMATION
  Report Type: 
  Country: None (occurrence: None)
  Receive Date: 20061114
  Receipt Date: 20061031
  Transmission Date: 20070319
  Serious: Yes (Other)
  Sender: FDA-Public Use
  Company Number: 2006-08-1138

PATIENT
  Age: 44 Year
  Sex: Female

DRUGS (7)
  1. PEG-INTRON [Suspect]
     Indication: HEPATITIS C
     Dosage: UNK; SC
     Route: 058
     Dates: start: 20060728
  2. REBETOL [Suspect]
     Indication: HEPATITIS C
     Dosage: UNK; PO
     Route: 048
     Dates: start: 20060728
  3. GABAPENTIN [Concomitant]
  4. METFORMIN HYDROCHLORIDE [Concomitant]
  5. TRAZODONE HCL [Concomitant]
  6. ZOLOFT [Concomitant]
  7. WELLBUTRIN SR [Concomitant]

REACTIONS (16)
  - ALOPECIA [None]
  - ANOREXIA [None]
  - DEHYDRATION [None]
  - DEPRESSION [None]
  - FATIGUE [None]
  - HEADACHE [None]
  - HYPERSOMNIA [None]
  - INJECTION SITE ERYTHEMA [None]
  - MIDDLE INSOMNIA [None]
  - NAUSEA [None]
  - PAIN [None]
  - PYREXIA [None]
  - RETCHING [None]
  - SKIN DISORDER [None]
  - SKIN WRINKLING [None]
  - VOMITING [None]
